FAERS Safety Report 7527308-5 (Version None)
Quarter: 2011Q2

REPORT INFORMATION
  Report Type: 
  Country: None (occurrence: None)
  Receive Date: 20110510
  Receipt Date: 20100420
  Transmission Date: 20111010
  Serious: Yes (Other)
  Sender: FDA-Public Use
  Company Number: AE-410-126

PATIENT
  Age: 57 Year
  Sex: Female

DRUGS (2)
  1. LIDODERM [Suspect]
     Indication: MUSCULOSKELETAL CHEST PAIN
     Dosage: 1 PATCH 12 HOURS A DAY
     Dates: start: 20090901
  2. DIAZEPAM [Concomitant]

REACTIONS (11)
  - VOMITING [None]
  - DRUG INEFFECTIVE FOR UNAPPROVED INDICATION [None]
  - HYPOACUSIS [None]
  - VISUAL IMPAIRMENT [None]
  - APPLICATION SITE RASH [None]
  - TACHYCARDIA [None]
  - VISION BLURRED [None]
  - HEADACHE [None]
  - CONVULSION [None]
  - NAUSEA [None]
  - TINNITUS [None]
